FAERS Safety Report 7508757-8 (Version None)
Quarter: 2011Q2

REPORT INFORMATION
  Report Type: 
  Country: None (occurrence: None)
  Receive Date: 20110527
  Receipt Date: 20110107
  Transmission Date: 20111010
  Serious: No
  Sender: FDA-Public Use
  Company Number: A0904101A

PATIENT
  Age: 82 Year
  Sex: Female

DRUGS (3)
  1. PROAIR HFA [Concomitant]
  2. VENTOLIN [Suspect]
     Indication: ASTHMA
     Route: 055
  3. COMBIVENT [Concomitant]

REACTIONS (3)
  - TREMOR [None]
  - NERVOUSNESS [None]
  - EXPIRED DRUG ADMINISTERED [None]
